FAERS Safety Report 26101820 (Version 1)
Quarter: 2025Q4

REPORT INFORMATION
  Report Type: Report from Study
  Country: US (occurrence: US)
  Receive Date: 20251128
  Receipt Date: 20251128
  Transmission Date: 20260118
  Serious: Yes (Other)
  Sender: MALLINCKRODT
  Company Number: US-MALLINCKRODT-MNK202507408

PATIENT
  Sex: Female

DRUGS (1)
  1. CORTICOTROPIN [Suspect]
     Active Substance: CORTICOTROPIN
     Indication: Dry eye
     Dosage: 80 UNITS
     Route: 058
     Dates: start: 20251031

REACTIONS (5)
  - Endodontic procedure [Unknown]
  - Lipoma [Unknown]
  - Condition aggravated [Unknown]
  - Abdominal discomfort [Unknown]
  - Cyst [Unknown]

NARRATIVE: CASE EVENT DATE: 20250101
